FAERS Safety Report 7014950-3 (Version None)
Quarter: 2010Q3

REPORT INFORMATION
  Report Type: 
  Country: None (occurrence: None)
  Receive Date: 20100927
  Receipt Date: 20100715
  Transmission Date: 20110219
  Serious: Yes (Hospitalization)
  Sender: FDA-Public Use
  Company Number: US-ASTRAZENECA-2010SE33029

PATIENT
  Sex: Female

DRUGS (1)
  1. ARIMIDEX [Suspect]
     Route: 048

REACTIONS (5)
  - FAECES DISCOLOURED [None]
  - FATIGUE [None]
  - GASTROENTERITIS VIRAL [None]
  - PHARYNGITIS [None]
  - WRONG DRUG ADMINISTERED [None]
